FAERS Safety Report 8460261-9 (Version None)
Quarter: 2012Q2

REPORT INFORMATION
  Report Type: 
  Country: None (occurrence: None)
  Receive Date: 20120323
  Receipt Date: 20110912
  Transmission Date: 20120825
  Serious: Yes (Other)
  Sender: FDA-Public Use
  Company Number: 163-21880-11091648

PATIENT
  Age: 61 Year
  Sex: Male

DRUGS (10)
  1. OXYCONTIN [Concomitant]
  2. POTASSIUM CHLORIDE [Concomitant]
  3. TAMSULOSIN HCL [Concomitant]
  4. ATENOLOL [Concomitant]
  5. REVLIMID [Suspect]
     Indication: MULTIPLE MYELOMA
     Dosage: 5 MG, DAILY X 21 DAYS, PO
     Route: 048
     Dates: start: 20110422
  6. OXYCODONE HCL [Concomitant]
  7. CYMBALTA [Concomitant]
  8. PANTOPRAZOLE [Concomitant]
  9. AMLODIPINE BESYLATE [Concomitant]
  10. LYRICA [Concomitant]

REACTIONS (1)
  - THROMBOPHLEBITIS SUPERFICIAL [None]
